FAERS Safety Report 7360892-3 (Version None)
Quarter: 2011Q1

REPORT INFORMATION
  Report Type: 
  Country: None (occurrence: None)
  Receive Date: 20110315
  Receipt Date: 20110315
  Transmission Date: 20110831
  Serious: No
  Sender: FDA-Public Use
  Company Number: None

PATIENT
  Age: 49 Year
  Sex: Female
  Weight: 68.0396 kg

DRUGS (1)
  1. BOTOX [Suspect]
     Dosage: 60
     Dates: start: 20110222, end: 20110222

REACTIONS (12)
  - SKIN WRINKLING [None]
  - VISION BLURRED [None]
  - ADVERSE EVENT [None]
  - DIPLOPIA [None]
  - MUSCLE TWITCHING [None]
  - HAEMORRHAGE [None]
  - BLADDER DISORDER [None]
  - DRY EYE [None]
  - EYELID PTOSIS [None]
  - MYALGIA [None]
  - FEELING ABNORMAL [None]
  - HEADACHE [None]
